FAERS Safety Report 6934438-5 (Version None)
Quarter: 2010Q3

REPORT INFORMATION
  Report Type: 
  Country: None (occurrence: None)
  Receive Date: 20100820
  Receipt Date: 20100812
  Transmission Date: 20110219
  Serious: Yes (Other)
  Sender: FDA-Public Use
  Company Number: B0670575A

PATIENT
  Sex: Male

DRUGS (1)
  1. AUGMENTIN '125' [Suspect]
     Indication: PRODUCT USED FOR UNKNOWN INDICATION
     Route: 048
     Dates: start: 20100728, end: 20100728

REACTIONS (6)
  - DYSPNOEA [None]
  - HYPERHIDROSIS [None]
  - NAUSEA [None]
  - PRURITUS [None]
  - RASH ERYTHEMATOUS [None]
  - VOMITING [None]
